FAERS Safety Report 6745172-9 (Version None)
Quarter: 2010Q2

REPORT INFORMATION
  Report Type: 
  Country: None (occurrence: None)
  Receive Date: 20100526
  Receipt Date: 20100520
  Transmission Date: 20101027
  Serious: Yes (Life-Threatening, Other)
  Sender: FDA-Public Use
  Company Number: 1000013962

PATIENT
  Age: 38 Year
  Sex: Female

DRUGS (3)
  1. SAVELLA [Suspect]
     Dosage: 12.5 MG (12.5 MG,1 IN 1 D), ORAL; 25 MG (12.4 MG,2 IN 1 D), ORAL; 50 MG (25 MG,2 IN 1 D), ORAL; 100
     Route: 048
  2. SAVELLA [Suspect]
     Dosage: 12.5 MG (12.5 MG,1 IN 1 D), ORAL; 25 MG (12.4 MG,2 IN 1 D), ORAL; 50 MG (25 MG,2 IN 1 D), ORAL; 100
     Route: 048
  3. SAVELLA [Suspect]
     Dosage: 12.5 MG (12.5 MG,1 IN 1 D), ORAL; 25 MG (12.4 MG,2 IN 1 D), ORAL; 50 MG (25 MG,2 IN 1 D), ORAL; 100
     Route: 048

REACTIONS (1)
  - MYOCARDIAL INFARCTION [None]
